FAERS Safety Report 20796767 (Version 1)
Quarter: 2022Q2

REPORT INFORMATION
  Report Type: Report from Study
  Country: CA (occurrence: CA)
  Receive Date: 20220506
  Receipt Date: 20220506
  Transmission Date: 20220721
  Serious: Yes (Other)
  Sender: FDA-Public Use
  Company Number: CA-Taiho Oncology Inc-EU-2022-01182

PATIENT
  Age: 59 Year
  Sex: Male

DRUGS (1)
  1. LONSURF [Suspect]
     Active Substance: TIPIRACIL HYDROCHLORIDE\TRIFLURIDINE
     Indication: Metastatic gastric cancer
     Dosage: CYCLE, DOSE AND FREQUENCY UNKNOWN
     Route: 048
     Dates: start: 20220409

REACTIONS (1)
  - Pain [Unknown]
